FAERS Safety Report 5837865-2 (Version None)
Quarter: 2008Q3

REPORT INFORMATION
  Report Type: 
  Country: None (occurrence: None)
  Receive Date: 20080808
  Receipt Date: 20080321
  Transmission Date: 20090109
  Serious: No
  Sender: FDA-Public Use
  Company Number: A0716781A

PATIENT
  Age: 27 Year
  Sex: Female

DRUGS (3)
  1. PAXIL CR [Suspect]
     Route: 048
     Dates: start: 20080201
  2. BIRTH CONTROL [Concomitant]
  3. PAXIL [Concomitant]
     Route: 048

REACTIONS (1)
  - URTICARIA [None]
